FAERS Safety Report 19967021 (Version 1)
Quarter: 2021Q4

REPORT INFORMATION
  Report Type: Spontaneous
  Country: GB (occurrence: GB)
  Receive Date: 20211019
  Receipt Date: 20211019
  Transmission Date: 20220304
  Serious: Yes (Other)
  Sender: FDA-Public Use
  Company Number: GB-SHILPA MEDICARE LIMITED-SML-GB-2021-01224

PATIENT
  Age: 55 Year
  Sex: Female

DRUGS (2)
  1. IMATINIB [Suspect]
     Active Substance: IMATINIB
     Indication: Gastrointestinal stromal tumour
     Dosage: AFTER SURGERY
     Route: 065
  2. IMATINIB [Suspect]
     Active Substance: IMATINIB
     Indication: Vaginal neoplasm
     Dosage: RECHALLENGED WITH LOWER DOSE
     Route: 065

REACTIONS (3)
  - Liver function test abnormal [Unknown]
  - Alopecia [Unknown]
  - Rash [Unknown]
